FAERS Safety Report 23447248 (Version 1)
Quarter: 2024Q1

REPORT INFORMATION
  Report Type: Spontaneous
  Country: CN (occurrence: CN)
  Receive Date: 20240126
  Receipt Date: 20240126
  Transmission Date: 20240410
  Serious: Yes (Other)
  Sender: FDA-Public Use
  Company Number: CN-PFIZER INC-PV202400010506

PATIENT
  Age: 3 Year
  Sex: Male
  Weight: 17.7 kg

DRUGS (1)
  1. METHOTREXATE SODIUM [Suspect]
     Active Substance: METHOTREXATE SODIUM
     Indication: Acute lymphocytic leukaemia
     Dosage: 3.34 G, 1X/DAY
     Route: 041
     Dates: start: 20231103, end: 20231103

REACTIONS (3)
  - Hepatic function abnormal [Recovered/Resolved]
  - Liver injury [Unknown]
  - Alanine aminotransferase increased [Recovered/Resolved]

NARRATIVE: CASE EVENT DATE: 20231105
